FAERS Safety Report 9633480 (Version 1)
Quarter: 2013Q4

REPORT INFORMATION
  Report Type: Spontaneous
  Country: US (occurrence: US)
  Receive Date: 20131021
  Receipt Date: 20131021
  Transmission Date: 20140711
  Serious: No
  Sender: FDA-Public Use
  Company Number: US-BAUSCH-BL-2013-002319

PATIENT
  Age: 84 Year
  Sex: Female
  Weight: 49.94 kg

DRUGS (2)
  1. BEPREVE (BEPOTASTINE BESILATE OPHTHALMIC SOLUTION 1.5%) [Suspect]
     Indication: PRODUCT USED FOR UNKNOWN INDICATION
     Dosage: 1 DROP IN EACH EYE, ONCE DAILY
     Route: 047
     Dates: start: 20130416, end: 20130417
  2. BIMATOPROST [Concomitant]
     Indication: GLAUCOMA

REACTIONS (3)
  - Expired drug administered [Recovered/Resolved]
  - Abnormal sensation in eye [Recovered/Resolved]
  - Urticaria [Recovered/Resolved]
